FAERS Safety Report 6974815-X (Version None)
Quarter: 2010Q3

REPORT INFORMATION
  Report Type: 
  Country: None (occurrence: None)
  Receive Date: 20100824
  Receipt Date: 20100706
  Transmission Date: 20110219
  Serious: No
  Sender: FDA-Public Use
  Company Number: 311119

PATIENT
  Age: 66 Year
  Sex: Female

DRUGS (2)
  1. VICTOZA [Suspect]
     Indication: TYPE 2 DIABETES MELLITUS
     Dosage: 1.8MG, QD, SUBCUTANEOUS
     Route: 058
     Dates: start: 20100501
  2. VICTOZA [Suspect]

REACTIONS (5)
  - BLOOD GLUCOSE INCREASED [None]
  - HEADACHE [None]
  - INCORRECT PRODUCT STORAGE [None]
  - INJECTION SITE HAEMATOMA [None]
  - NAUSEA [None]
